FAERS Safety Report 13915204 (Version 1)
Quarter: 2017Q3

REPORT INFORMATION
  Report Type: Spontaneous
  Country: US (occurrence: US)
  Receive Date: 20170828
  Receipt Date: 20170828
  Transmission Date: 20171127
  Serious: Yes (Disabling)
  Sender: FDA-Public Use
  Company Number: None

PATIENT
  Age: 66 Year
  Sex: Female
  Weight: 51.3 kg

DRUGS (7)
  1. LEVOFLOXACIN 750 MG TABS [Suspect]
     Active Substance: LEVOFLOXACIN
     Indication: VAGINAL CELLULITIS
     Dosage: ?          QUANTITY:10 TABLET(S);?
     Route: 048
     Dates: start: 20170808, end: 20170815
  2. LEVOFLOXACIN 750 MG TABS [Suspect]
     Active Substance: LEVOFLOXACIN
     Indication: POST PROCEDURAL COMPLICATION
     Dosage: ?          QUANTITY:10 TABLET(S);?
     Route: 048
     Dates: start: 20170808, end: 20170815
  3. VITAMIN C [Concomitant]
     Active Substance: ASCORBIC ACID
  4. MULTI VITAMIN [Concomitant]
     Active Substance: VITAMINS
  5. CALCIUM MAGNESIUM [Concomitant]
     Active Substance: CALCIUM\MAGNESIUM
  6. LEVOFLOXACIN 750 MG TABS [Suspect]
     Active Substance: LEVOFLOXACIN
     Indication: HYSTERECTOMY
     Dosage: ?          QUANTITY:10 TABLET(S);?
     Route: 048
     Dates: start: 20170808, end: 20170815
  7. VITAMIN D [Concomitant]
     Active Substance: CHOLECALCIFEROL

REACTIONS (9)
  - Joint range of motion decreased [None]
  - Dizziness [None]
  - Musculoskeletal pain [None]
  - Loss of personal independence in daily activities [None]
  - Palpitations [None]
  - Pain in extremity [None]
  - Insomnia [None]
  - Blood pressure decreased [None]
  - Arthralgia [None]

NARRATIVE: CASE EVENT DATE: 20170815
